FAERS Safety Report 12503072 (Version 1)
Quarter: 2016Q2

REPORT INFORMATION
  Report Type: Spontaneous
  Country: US (occurrence: None)
  Receive Date: 20160627
  Receipt Date: 20160627
  Transmission Date: 20160815
  Serious: Yes (Other)
  Sender: FDA-Public Use
  Company Number: None

PATIENT
  Age: 21 Year
  Sex: Female
  Weight: 105.46 kg

DRUGS (2)
  1. IMPLANON [Suspect]
     Active Substance: ETONOGESTREL
  2. NEXPLANON [Suspect]
     Active Substance: ETONOGESTREL
     Indication: CONTRACEPTION

REACTIONS (17)
  - Complication associated with device [None]
  - Abdominal pain [None]
  - Vaginal discharge [None]
  - Migraine [None]
  - Stress [None]
  - Tinnitus [None]
  - Dysmenorrhoea [None]
  - Insomnia [None]
  - Nausea [None]
  - Visual impairment [None]
  - Muscle spasms [None]
  - Vaginal haemorrhage [None]
  - Vomiting [None]
  - Menstruation irregular [None]
  - Hormone level abnormal [None]
  - Weight increased [None]
  - Emotional disorder [None]

NARRATIVE: CASE EVENT DATE: 20160526
